FAERS Safety Report 6596176-0 (Version None)
Quarter: 2010Q1

REPORT INFORMATION
  Report Type: 
  Country: None (occurrence: None)
  Receive Date: 20100223
  Receipt Date: 20100212
  Transmission Date: 20100710
  Serious: Yes (Hospitalization)
  Sender: FDA-Public Use
  Company Number: FR-ROCHE-684426

PATIENT
  Sex: Female
  Weight: 66 kg

DRUGS (4)
  1. BEVACIZUMAB [Suspect]
     Indication: INFLAMMATORY CARCINOMA OF THE BREAST
     Dosage: FORM: VIAL
     Route: 042
     Dates: start: 20091028
  2. TRASTUZUMAB [Suspect]
     Indication: INFLAMMATORY CARCINOMA OF THE BREAST
     Route: 042
     Dates: start: 20100120
  3. TAXOTERE [Suspect]
     Indication: INFLAMMATORY CARCINOMA OF THE BREAST
     Dosage: FORM:VIAL
     Route: 042
     Dates: start: 20100120
  4. TRIFLUCAN [Concomitant]

REACTIONS (1)
  - FEBRILE BONE MARROW APLASIA [None]
